FAERS Safety Report 7783352-4 (Version None)
Quarter: 2011Q3

REPORT INFORMATION
  Report Type: 
  Country: None (occurrence: None)
  Receive Date: 20110927
  Receipt Date: 20110927
  Transmission Date: 20111222
  Serious: Yes (Hospitalization)
  Sender: FDA-Public Use
  Company Number: None

PATIENT
  Age: 50 Year
  Sex: Male
  Weight: 116.8 kg

DRUGS (1)
  1. ETODOLAC [Suspect]
     Indication: ARTHRALGIA
     Dosage: 400 MG PRN PO
     Route: 048
     Dates: start: 20110218, end: 20110825

REACTIONS (2)
  - ABSCESS [None]
  - DUODENAL ULCER PERFORATION [None]
